FAERS Safety Report 9115676 (Version 1)
Quarter: 2013Q1

REPORT INFORMATION
  Report Type: Spontaneous
  Country: US (occurrence: None)
  Receive Date: 20130221
  Receipt Date: 20130221
  Transmission Date: 20140127
  Serious: Yes (Other)
  Sender: FDA-Public Use
  Company Number: None

PATIENT
  Age: 60 Year
  Sex: Female
  Weight: 93.44 kg

DRUGS (1)
  1. CARBOPLATIN [Suspect]
     Indication: LUNG NEOPLASM MALIGNANT
     Dosage: 650 IV
     Route: 042

REACTIONS (5)
  - Vision blurred [None]
  - Heart rate increased [None]
  - Paraesthesia oral [None]
  - Infusion related reaction [None]
  - Blood pressure systolic increased [None]
